FAERS Safety Report 4303251-X (Version None)
Quarter: 2004Q1

REPORT INFORMATION
  Report Type: 
  Country: None (occurrence: None)
  Receive Date: 20040224
  Receipt Date: 20040120
  Transmission Date: 20041129
  Serious: Yes (Hospitalization)
  Sender: FDA-Public Use
  Company Number: GB-BRISTOL-MYERS SQUIBB COMPANY-12482691

PATIENT
  Age: 62 Year
  Sex: Female

DRUGS (3)
  1. PACLITAXEL [Suspect]
     Indication: PERITONEAL CARCINOMA
     Route: 042
  2. CARBOPLATIN [Suspect]
     Indication: PERITONEAL CARCINOMA
     Route: 042
  3. DOXORUBICIN HYDROCHLORIDE [Suspect]
     Indication: PERITONEAL CARCINOMA
     Dosage: ONLY GIVEN ON ODD NUMBERED CYCLES
     Route: 042

REACTIONS (1)
  - NEUTROPENIC SEPSIS [None]
